FAERS Safety Report 12003031 (Version 1)
Quarter: 2016Q1

REPORT INFORMATION
  Report Type: Report from Study
  Country: US (occurrence: US)
  Receive Date: 20160204
  Receipt Date: 20160204
  Transmission Date: 20160526
  Serious: No
  Sender: FDA-Public Use
  Company Number: US-ABBVIE-15K-163-1431784-00

PATIENT
  Sex: Female

DRUGS (1)
  1. HUMIRA [Suspect]
     Active Substance: ADALIMUMAB
     Indication: RHEUMATOID ARTHRITIS
     Route: 065
     Dates: start: 20150703

REACTIONS (4)
  - Neck pain [Recovered/Resolved]
  - Drug effect decreased [Recovered/Resolved with Sequelae]
  - Bone pain [Recovered/Resolved]
  - Musculoskeletal pain [Recovered/Resolved]

NARRATIVE: CASE EVENT DATE: 20150709
